FAERS Safety Report 4370372-5 (Version None)
Quarter: 2004Q2

REPORT INFORMATION
  Report Type: 
  Country: None (occurrence: None)
  Receive Date: 20040603
  Receipt Date: 20040219
  Transmission Date: 20050107
  Serious: No
  Sender: FDA-Public Use
  Company Number: US-BRISTOL-MYERS SQUIBB COMPANY-12511689

PATIENT
  Age: 40 Year
  Sex: Male

DRUGS (10)
  1. ABILIFY [Suspect]
     Indication: BIPOLAR DISORDER
     Dosage: INCR, 20 MG (NO DATE); INCR, 45 MG (05-AUG-03);DECR, 30 MG (NO DATE); DECR, 20 MG ON 11-NOV-03
     Route: 048
     Dates: start: 20030311
  2. TRILEPTAL [Concomitant]
  3. VITAMIN E [Concomitant]
     Dates: start: 20031111
  4. GABITRIL [Concomitant]
     Dates: start: 20031111
  5. RISPERDAL [Concomitant]
  6. LITHIUM CARBONATE [Concomitant]
  7. DEPAKOTE [Concomitant]
  8. ZYPREXA [Concomitant]
  9. LEXAPRO [Concomitant]
  10. NAVANE [Concomitant]

REACTIONS (4)
  - DYSKINESIA [None]
  - PRESCRIBED OVERDOSE [None]
  - THINKING ABNORMAL [None]
  - TREMOR [None]
